FAERS Safety Report 9185203 (Version 1)
Quarter: 2013Q1

REPORT INFORMATION
  Report Type: Spontaneous
  Country: DE (occurrence: DE)
  Receive Date: 20130325
  Receipt Date: 20130325
  Transmission Date: 20140127
  Serious: Yes (Death)
  Sender: FDA-Public Use
  Company Number: DE-ASTRAZENECA-2013SE17951

PATIENT
  Sex: 0

DRUGS (1)
  1. BRILIQUE [Suspect]
     Dosage: LOADING DOSAGE
     Route: 048

REACTIONS (1)
  - Post procedural haemorrhage [Fatal]
